FAERS Safety Report 7426332-0 (Version None)
Quarter: 2011Q2

REPORT INFORMATION
  Report Type: 
  Country: None (occurrence: None)
  Receive Date: 20110420
  Receipt Date: 20110412
  Transmission Date: 20111010
  Serious: Yes (Other)
  Sender: FDA-Public Use
  Company Number: B0713258A

PATIENT
  Sex: Male
  Weight: 67 kg

DRUGS (6)
  1. ALKERAN [Suspect]
     Indication: STEM CELL TRANSPLANT
     Dosage: 100MGM2 PER DAY
     Route: 042
     Dates: start: 20080527, end: 20080528
  2. FLUCONAZOLE [Concomitant]
     Dosage: 20MG PER DAY
     Route: 048
     Dates: start: 20080527, end: 20080605
  3. ZOVIRAX [Concomitant]
     Dosage: 1000MG PER DAY
     Route: 048
     Dates: start: 20080527, end: 20080616
  4. GRAN [Concomitant]
     Dates: start: 20080603, end: 20080611
  5. AMLODIN [Concomitant]
     Dosage: 2.5MG PER DAY
     Route: 048
     Dates: start: 20080515
  6. GASTER [Concomitant]
     Dosage: 40MG PER DAY
     Route: 048
     Dates: start: 20080515

REACTIONS (1)
  - FEBRILE NEUTROPENIA [None]
